FAERS Safety Report 14229732 (Version 2)
Quarter: 2018Q2

REPORT INFORMATION
  Report Type: Report from Study
  Country: BR (occurrence: BR)
  Receive Date: 20171128
  Receipt Date: 20180503
  Transmission Date: 20180711
  Serious: Yes (Other)
  Sender: FDA-Public Use
  Company Number: PHHY2017BR174944

PATIENT
  Sex: Female
  Weight: 68 kg

DRUGS (1)
  1. ACLASTA [Suspect]
     Active Substance: ZOLEDRONIC ACID
     Indication: OSTEOPOROSIS
     Dosage: 1 DF (5 MG/100 ML), Q12MO
     Route: 042
     Dates: start: 201707, end: 201707

REACTIONS (8)
  - Overweight [Unknown]
  - Insomnia [Unknown]
  - Spinal disorder [Unknown]
  - Anaemia [Unknown]
  - Spinal pain [Not Recovered/Not Resolved]
  - Blood urea increased [Unknown]
  - Malaise [Not Recovered/Not Resolved]
  - Drug ineffective [Unknown]
